FAERS Safety Report 13091603 (Version 6)
Quarter: 2018Q3

REPORT INFORMATION
  Report Type: Report from Study
  Country: US (occurrence: US)
  Receive Date: 20170106
  Receipt Date: 20180831
  Transmission Date: 20181010
  Serious: Yes (Life-Threatening, Hospitalization, Other)
  Sender: FDA-Public Use
  Company Number: US-AMGEN-USASL2017000713

PATIENT
  Age: 58 Year
  Sex: Male

DRUGS (9)
  1. ENBREL [Suspect]
     Active Substance: ETANERCEPT
     Indication: PSORIATIC ARTHROPATHY
     Dosage: 25 MG, 2 TIMES/WK
     Route: 065
     Dates: end: 2011
  2. CARVEDILOL. [Concomitant]
     Active Substance: CARVEDILOL
     Dosage: 3.5 MG, BID
  3. BABY ASPIRIN [Concomitant]
     Active Substance: ASPIRIN
     Dosage: 81 MG, QD
  4. SALMON OIL [Concomitant]
     Active Substance: FISH OIL
     Dosage: UNK
  5. LISINOPRIL. [Concomitant]
     Active Substance: LISINOPRIL
     Dosage: 5 MG, QD
  6. ENBREL [Suspect]
     Active Substance: ETANERCEPT
     Indication: PSORIASIS
     Dosage: 50 MG, QWK
     Route: 065
     Dates: start: 201701
  7. ENBREL [Suspect]
     Active Substance: ETANERCEPT
     Indication: ANKYLOSING SPONDYLITIS
     Dosage: UNK
     Route: 065
  8. ENBREL [Suspect]
     Active Substance: ETANERCEPT
     Dosage: 50 MG, QWK
     Route: 065
  9. LIPITOR [Concomitant]
     Active Substance: ATORVASTATIN CALCIUM
     Dosage: 60 MG, UNK

REACTIONS (13)
  - Cholecystectomy [Unknown]
  - Psoriatic arthropathy [Unknown]
  - Injection site pain [Unknown]
  - Restrictive pulmonary disease [Unknown]
  - Restless legs syndrome [Unknown]
  - Periarthritis [Unknown]
  - Ankylosing spondylitis [Unknown]
  - Deafness [Unknown]
  - Myocardial infarction [Unknown]
  - Sleep apnoea syndrome [Unknown]
  - Intervertebral disc degeneration [Unknown]
  - Sarcoidosis [Unknown]
  - Wrist surgery [Unknown]

NARRATIVE: CASE EVENT DATE: 1993
